FAERS Safety Report 16828252 (Version 5)
Quarter: 2019Q4

REPORT INFORMATION
  Report Type: Report from Study
  Country: JP (occurrence: JP)
  Receive Date: 20190919
  Receipt Date: 20191230
  Transmission Date: 20200122
  Serious: Yes (Hospitalization)
  Sender: FDA-Public Use
  Company Number: JP-EISAI MEDICAL RESEARCH-EC-2019-062299

PATIENT
  Age: 68 Year
  Sex: Male
  Weight: 71 kg

DRUGS (9)
  1. METGLUCO [Concomitant]
     Active Substance: METFORMIN HYDROCHLORIDE
  2. IA-CALL [Suspect]
     Active Substance: CISPLATIN
     Indication: HEPATOCELLULAR CARCINOMA
     Route: 013
     Dates: start: 20190418, end: 20190905
  3. DEXART [Suspect]
     Active Substance: DEXAMETHASONE SODIUM PHOSPHATE
     Indication: NAUSEA
     Dosage: 6.6 MG/KG ON DAY 1 AND 3.3MG/KG AND ON DAYS 2 AND 3 IN A TREATMENT CYCLE OF 4 WEEKS
     Route: 041
     Dates: start: 20190418, end: 20190907
  4. SELERA [Concomitant]
  5. LENVATINIB [Suspect]
     Active Substance: LENVATINIB
     Indication: HEPATOCELLULAR CARCINOMA
     Route: 048
     Dates: start: 20190418, end: 20190613
  6. LENVATINIB [Suspect]
     Active Substance: LENVATINIB
     Route: 048
     Dates: start: 20190614, end: 20190912
  7. CARDENALIN [Concomitant]
     Active Substance: DOXAZOSIN MESYLATE
  8. MICAMLO [Concomitant]
     Active Substance: AMLODIPINE BESYLATE\TELMISARTAN
  9. AMARYL [Concomitant]
     Active Substance: GLIMEPIRIDE

REACTIONS (1)
  - Cholecystitis [Recovered/Resolved]

NARRATIVE: CASE EVENT DATE: 20190910
